FAERS Safety Report 5504309-X (Version None)
Quarter: 2007Q4

REPORT INFORMATION
  Report Type: 
  Country: None (occurrence: None)
  Receive Date: 20071101
  Receipt Date: 20071022
  Transmission Date: 20080405
  Serious: Yes (Hospitalization, Other)
  Sender: FDA-Public Use
  Company Number: US-SHR-US-2007-038075

PATIENT
  Age: 68 Year
  Sex: Female
  Weight: 61.224 kg

DRUGS (5)
  1. BETASERON [Suspect]
     Indication: RELAPSING-REMITTING MULTIPLE SCLEROSIS
     Dosage: 8 MIU, EVERY 2D
     Route: 058
     Dates: start: 19940317
  2. DILANTIN                                /CAN/ [Concomitant]
     Dosage: 300 MG, 1X/DAY
  3. KEFLEX [Concomitant]
  4. NITROFUR MAC [Concomitant]
     Dosage: 100 MG, 1X/DAY
  5. ASPIRIN [Concomitant]
     Dosage: UNK, 1X/DAY

REACTIONS (3)
  - CONVULSION [None]
  - CYSTITIS [None]
  - SPEECH DISORDER [None]
